FAERS Safety Report 19880970 (Version 4)
Quarter: 2022Q3

REPORT INFORMATION
  Report Type: Spontaneous
  Country: US (occurrence: None)
  Receive Date: 20210924
  Receipt Date: 20220902
  Transmission Date: 20221027
  Serious: Yes (Death, Other)
  Sender: FDA-Public Use
  Company Number: 2021A734219

PATIENT
  Age: 27681 Day
  Sex: Male
  Weight: 122.3 kg

DRUGS (24)
  1. NEXIUM [Suspect]
     Active Substance: ESOMEPRAZOLE MAGNESIUM
     Indication: Gastrooesophageal reflux disease
     Route: 048
  2. NEXIUM 24HR [Suspect]
     Active Substance: ESOMEPRAZOLE MAGNESIUM
     Indication: Gastrooesophageal reflux disease
     Route: 048
  3. PRILOSEC [Suspect]
     Active Substance: OMEPRAZOLE MAGNESIUM
     Indication: Gastrooesophageal reflux disease
     Route: 048
  4. PROTONIX [Suspect]
     Active Substance: PANTOPRAZOLE SODIUM
     Indication: Gastrooesophageal reflux disease
     Route: 065
  5. PROTONIX [Suspect]
     Active Substance: PANTOPRAZOLE SODIUM
     Indication: Gastrooesophageal reflux disease
     Dosage: GENERIC40.0MG UNKNOWN
     Route: 065
  6. COLACE [Concomitant]
     Active Substance: DOCUSATE SODIUM
  7. TYLENOL [Concomitant]
     Active Substance: ACETAMINOPHEN
  8. DUONEB [Concomitant]
     Active Substance: ALBUTEROL SULFATE\IPRATROPIUM BROMIDE
  9. PULMICORT TURBUHALER [Concomitant]
     Active Substance: BUDESONIDE
  10. DIGOXIN [Concomitant]
     Active Substance: DIGOXIN
  11. FLOMAX [Concomitant]
     Active Substance: TAMSULOSIN HYDROCHLORIDE
  12. BUMEX [Concomitant]
     Active Substance: BUMETANIDE
  13. METOPROLOL [Concomitant]
     Active Substance: METOPROLOL
  14. ELIQUIS [Concomitant]
     Active Substance: APIXABAN
  15. BUMETANIDE [Concomitant]
     Active Substance: BUMETANIDE
  16. ESCITALOPRAM [Concomitant]
     Active Substance: ESCITALOPRAM OXALATE
  17. TAMSULOSIN [Concomitant]
     Active Substance: TAMSULOSIN
  18. ALBUTEROL [Concomitant]
     Active Substance: ALBUTEROL
  19. GUAIFENESIN [Concomitant]
     Active Substance: GUAIFENESIN
  20. PREDNISOLONE [Concomitant]
     Active Substance: PREDNISOLONE
  21. METOLAZONE [Concomitant]
     Active Substance: METOLAZONE
  22. HYDRALAZINE [Concomitant]
     Active Substance: HYDRALAZINE HYDROCHLORIDE
  23. FUROSEMIDE [Concomitant]
     Active Substance: FUROSEMIDE
  24. TRAMADOL [Concomitant]
     Active Substance: TRAMADOL

REACTIONS (9)
  - End stage renal disease [Fatal]
  - Hypertension [Fatal]
  - Cardiac failure [Fatal]
  - Acute kidney injury [Unknown]
  - Chronic kidney disease [Unknown]
  - Nephrogenic anaemia [Unknown]
  - Tubulointerstitial nephritis [Unknown]
  - Renal failure [Unknown]
  - Hyperparathyroidism secondary [Unknown]

NARRATIVE: CASE EVENT DATE: 20111006
